FAERS Safety Report 7802111-7 (Version None)
Quarter: 2011Q4

REPORT INFORMATION
  Report Type: 
  Country: None (occurrence: None)
  Receive Date: 20111005
  Receipt Date: 20110915
  Transmission Date: 20120403
  Serious: Yes (Other)
  Sender: FDA-Public Use
  Company Number: 11-064

PATIENT
  Sex: Female

DRUGS (1)
  1. BISACODYL [Suspect]

REACTIONS (3)
  - MALAISE [None]
  - ASTHENIA [None]
  - DEHYDRATION [None]
